FAERS Safety Report 11205689 (Version 1)
Quarter: 2015Q2

REPORT INFORMATION
  Report Type: Spontaneous
  Country: US (occurrence: US)
  Receive Date: 20150622
  Receipt Date: 20150622
  Transmission Date: 20150821
  Serious: No
  Sender: FDA-Public Use
  Company Number: US-BAYER-2015-349792

PATIENT
  Age: 15 Year
  Sex: Female
  Weight: 63 kg

DRUGS (2)
  1. ALEVE [Suspect]
     Active Substance: NAPROXEN SODIUM
     Dosage: POSSIBLY 10 TO 12, ONCE
     Route: 048
     Dates: start: 20150614, end: 20150614
  2. LAMOTRIGIN [Concomitant]
     Active Substance: LAMOTRIGINE

REACTIONS (2)
  - Intentional overdose [Unknown]
  - Expired product administered [Unknown]

NARRATIVE: CASE EVENT DATE: 20150614
